FAERS Safety Report 12474358 (Version 1)
Quarter: 2016Q2

REPORT INFORMATION
  Report Type: Spontaneous
  Country: US (occurrence: None)
  Receive Date: 20160616
  Receipt Date: 20160616
  Transmission Date: 20160815
  Serious: Yes (Other)
  Sender: FDA-Public Use
  Company Number: None

PATIENT
  Age: 35 Year
  Weight: 81.65 kg

DRUGS (5)
  1. KEFLEX [Concomitant]
     Active Substance: CEPHALEXIN
  2. MUPIROCIN. [Concomitant]
     Active Substance: MUPIROCIN
  3. JUICE PLUS GUMMIES [Concomitant]
  4. MIRENA [Suspect]
     Active Substance: LEVONORGESTREL
  5. VALTREX [Concomitant]
     Active Substance: VALACYCLOVIR HYDROCHLORIDE

REACTIONS (4)
  - Bladder irritation [None]
  - Bladder pain [None]
  - Urinary tract discomfort [None]
  - Abdominal pain lower [None]

NARRATIVE: CASE EVENT DATE: 20160610
